FAERS Safety Report 25013068 (Version 1)
Quarter: 2025Q1

REPORT INFORMATION
  Report Type: Spontaneous
  Country: IT (occurrence: IT)
  Receive Date: 20250226
  Receipt Date: 20250226
  Transmission Date: 20250409
  Serious: Yes (Other)
  Sender: TEVA
  Company Number: None

PATIENT
  Age: 69 Year
  Sex: Male
  Weight: 60 kg

DRUGS (6)
  1. GEMCITABINE [Suspect]
     Active Substance: GEMCITABINE
     Indication: Papillary renal cell carcinoma
     Route: 042
     Dates: start: 20240311, end: 20240311
  2. FINASTERIDE [Concomitant]
     Active Substance: FINASTERIDE
     Indication: Product used for unknown indication
     Route: 065
  3. CARBOPLATIN [Suspect]
     Active Substance: CARBOPLATIN
     Indication: Papillary renal cell carcinoma
     Route: 042
     Dates: start: 20240311, end: 20240311
  4. METFORMIN HYDROCHLORIDE [Concomitant]
     Active Substance: METFORMIN HYDROCHLORIDE
     Indication: Product used for unknown indication
     Route: 065
  5. QTERN [Concomitant]
     Active Substance: DAPAGLIFLOZIN\SAXAGLIPTIN HYDROCHLORIDE
     Indication: Product used for unknown indication
     Route: 065
  6. SILODOSIN [Concomitant]
     Active Substance: SILODOSIN
     Indication: Product used for unknown indication
     Route: 065

REACTIONS (2)
  - Thrombocytopenia [Recovering/Resolving]
  - Asthenia [Recovering/Resolving]

NARRATIVE: CASE EVENT DATE: 20240314
